FAERS Safety Report 5604468-4 (Version None)
Quarter: 2008Q1

REPORT INFORMATION
  Report Type: 
  Country: None (occurrence: None)
  Receive Date: 20080123
  Receipt Date: 20080123
  Transmission Date: 20080703
  Serious: No
  Sender: FDA-Public Use
  Company Number: None

PATIENT
  Sex: Female
  Weight: 45.3597 kg

DRUGS (1)
  1. DOCU 150MG/15 ML HI TECH PHARMACAL [Suspect]
     Indication: CONSTIPATION
     Dosage: 10ML DAILY PO
     Route: 048
     Dates: start: 20080118, end: 20080118

REACTIONS (3)
  - COUGH [None]
  - PHARMACEUTICAL PRODUCT COMPLAINT [None]
  - THROAT IRRITATION [None]
